FAERS Safety Report 5175359-0 (Version None)
Quarter: 2006Q4

REPORT INFORMATION
  Report Type: 
  Country: None (occurrence: None)
  Receive Date: 20061211
  Receipt Date: 20061211
  Transmission Date: 20070319
  Serious: No
  Sender: FDA-Public Use
  Company Number: None

PATIENT
  Age: 22 Year
  Sex: Female
  Weight: 49.8957 kg

DRUGS (3)
  1. DEPO-PROVERA [Suspect]
     Indication: CONTRACEPTION
     Dosage: 1 104 MG SHOT 1 DOSE EVERY 3 SQ
     Route: 058
     Dates: start: 20051115, end: 20060215
  2. DEPO-PROVERA [Suspect]
     Indication: CONTRACEPTION
     Dosage: 1 104 MG SHOT 1 DOSE EVERY 3 SQ
     Route: 058
     Dates: start: 20060215, end: 20060515
  3. HOMEOPATHIC TINTURE [Concomitant]

REACTIONS (1)
  - INJECTION SITE REACTION [None]
